FAERS Safety Report 7176690-X (Version None)
Quarter: 2010Q4

REPORT INFORMATION
  Report Type: 
  Country: None (occurrence: None)
  Receive Date: 20101215
  Receipt Date: 20101215
  Transmission Date: 20110411
  Serious: Yes (Life-Threatening, Disabling, Other)
  Sender: FDA-Public Use
  Company Number: None

PATIENT
  Age: 33 Year
  Sex: Female
  Weight: 110.6777 kg

DRUGS (2)
  1. CYMBALTA [Suspect]
     Indication: ANXIETY
     Dates: start: 20070101, end: 20101231
  2. CYMBALTA [Suspect]
     Indication: FIBROMYALGIA
     Dates: start: 20070101, end: 20101231

REACTIONS (1)
  - ILL-DEFINED DISORDER [None]
